FAERS Safety Report 8017609-9 (Version None)
Quarter: 2012Q1

REPORT INFORMATION
  Report Type: 
  Country: None (occurrence: None)
  Receive Date: 20120103
  Receipt Date: 20111222
  Transmission Date: 20120608
  Serious: Yes (Hospitalization, Other)
  Sender: FDA-Public Use
  Company Number: US-BAYER-2011-021247

PATIENT
  Age: 31 Year
  Sex: Female

DRUGS (18)
  1. YAZ [Suspect]
     Indication: CONTRACEPTION
     Dosage: UNK
     Dates: start: 20071101, end: 20080401
  2. NAPROXEN [Concomitant]
     Indication: PLEURISY
     Dosage: UNK
     Dates: start: 20080402, end: 20080422
  3. HYDROCODONE BITARTRATE AND ACETAMINOPHEN [Concomitant]
     Indication: PLEURISY
     Dosage: UNK
     Dates: start: 20080402, end: 20080422
  4. LIDODERM [Concomitant]
     Indication: PLEURISY
     Dosage: UNK
     Route: 062
     Dates: start: 20080402, end: 20080422
  5. PROAIR HFA [Concomitant]
     Dosage: UNK
     Dates: start: 20080101
  6. AZITHROMYCIN [Concomitant]
     Dosage: UNK
     Dates: start: 20080402
  7. ISOMETHEPTENE/DICHLORALPHENAZONE/APAP [Concomitant]
     Dosage: UNK
     Dates: start: 20080111
  8. AZITHROMYCIN [Concomitant]
     Indication: PLEURISY
     Dosage: UNK
     Dates: start: 20080201
  9. LEVAQUIN [Concomitant]
     Dosage: 750 MG, QD
     Route: 048
     Dates: start: 20080414
  10. PROPOXYPHENE NAPSYLATE W/PARACETAMOL [Concomitant]
     Dosage: UNK
     Route: 048
     Dates: start: 20080302
  11. ALDARA [Concomitant]
     Dosage: 5 %, UNK
     Dates: start: 20080117
  12. SUCRALFATE [Concomitant]
     Dosage: 1 G, QID
     Dates: start: 20080123
  13. VIGAMOX [Concomitant]
     Dosage: UNK
     Dates: start: 20080129
  14. PREVACID [Concomitant]
     Indication: GASTROOESOPHAGEAL REFLUX DISEASE
     Dosage: UNK
     Dates: start: 20080201
  15. REGLAN [Concomitant]
     Indication: GASTROOESOPHAGEAL REFLUX DISEASE
     Dosage: UNK
     Dates: start: 20080209
  16. PROMETHAZINE [Concomitant]
     Dosage: 25 MG, TID
     Dates: start: 20080302
  17. PROAIR HFA [Concomitant]
     Dosage: UNK
     Route: 055
     Dates: start: 20080301
  18. PREDNISONE TAB [Concomitant]
     Indication: PLEURISY
     Dosage: UNK
     Dates: start: 20080407, end: 20080422

REACTIONS (3)
  - PULMONARY EMBOLISM [None]
  - DYSPNOEA [None]
  - CHEST PAIN [None]
